FAERS Safety Report 6170029-4 (Version None)
Quarter: 2009Q2

REPORT INFORMATION
  Report Type: 
  Country: None (occurrence: None)
  Receive Date: 20090428
  Receipt Date: 20090424
  Transmission Date: 20091009
  Serious: Yes (Hospitalization)
  Sender: FDA-Public Use
  Company Number: DE-BRISTOL-MYERS SQUIBB COMPANY-14557631

PATIENT
  Sex: Female

DRUGS (5)
  1. ABILIFY [Suspect]
     Dosage: DISCONTINUATION OF ABILIFY (WITHOUT TAPERING) MID 2008. TREATED OVER YEARS.
  2. AMITRIPTLINE HYDROCHLORIDE TAB [Concomitant]
  3. CYMBALTA [Concomitant]
  4. OMEPRAZOLE [Concomitant]
  5. DOPAMINE HCL [Concomitant]

REACTIONS (4)
  - GASTROINTESTINAL DISORDER [None]
  - INSOMNIA [None]
  - RESTLESS LEGS SYNDROME [None]
  - RESTLESSNESS [None]
